FAERS Safety Report 11418412 (Version 1)
Quarter: 2015Q3

REPORT INFORMATION
  Report Type: Spontaneous
  Country: US (occurrence: US)
  Receive Date: 20150826
  Receipt Date: 20150826
  Transmission Date: 20151125
  Serious: No
  Sender: FDA-Public Use
  Company Number: US-NOVEN PHARMACEUTICALS, INC.-US2015000344

PATIENT
  Age: 47 Year
  Sex: Female

DRUGS (4)
  1. MINIVELLE [Suspect]
     Active Substance: ESTRADIOL
     Indication: NIGHT SWEATS
     Dosage: 0.075 MG, UNK, DOSE WAS INCREASED FROM 0.05 MG TO 0.075 MG
     Route: 062
  2. MINIVELLE [Suspect]
     Active Substance: ESTRADIOL
     Dosage: 0.05 UNK, UNK, DOSE WAS DECREASED FROM 0.075 MG TO 0.05 MG
     Route: 062
  3. MINIVELLE [Suspect]
     Active Substance: ESTRADIOL
     Indication: HOT FLUSH
     Dosage: 0.05 MG, UNK
     Route: 062
     Dates: start: 20150427
  4. HERBAL NOS [Concomitant]
     Active Substance: HERBALS
     Dosage: HERBAL MEDICINE

REACTIONS (2)
  - Drug ineffective [Unknown]
  - Drug effect increased [Unknown]
